FAERS Safety Report 8892982 (Version 1)
Quarter: 2012Q4

REPORT INFORMATION
  Report Type: 
  Country: US (occurrence: US)
  Receive Date: 20121107
  Receipt Date: 20121107
  Transmission Date: 20130627
  Serious: No
  Sender: FDA-Public Use
  Company Number: US-AMGEN-USASP2011059488

PATIENT
  Age: 38 Year
  Sex: Male
  Weight: 379 kg

DRUGS (3)
  1. ENBREL [Suspect]
     Indication: PRODUCT USED FOR UNKNOWN INDICATION
     Dosage: 50 mg, qwk
     Route: 058
  2. CLODERM                            /00212501/ [Concomitant]
  3. PROTOPIC [Concomitant]

REACTIONS (1)
  - Headache [Unknown]
